FAERS Safety Report 8280018-1 (Version None)
Quarter: 2012Q2

REPORT INFORMATION
  Report Type: 
  Country: None (occurrence: None)
  Receive Date: 20120412
  Receipt Date: 20120128
  Transmission Date: 20120825
  Serious: No
  Sender: FDA-Public Use
  Company Number: US-ASTRAZENECA-2010SE08447

PATIENT
  Age: 73 Year
  Sex: Female

DRUGS (3)
  1. CIPRODEX [Concomitant]
  2. PRILOSEC [Suspect]
     Route: 048
  3. NEXIUM [Suspect]
     Route: 048
     Dates: end: 20091001

REACTIONS (12)
  - DIABETES MELLITUS [None]
  - MALAISE [None]
  - DIARRHOEA [None]
  - RENAL DISORDER [None]
  - ABDOMINAL PAIN UPPER [None]
  - DYSPEPSIA [None]
  - NAUSEA [None]
  - VOMITING [None]
  - DRUG DOSE OMISSION [None]
  - DRUG INEFFECTIVE [None]
  - DIZZINESS [None]
  - HYPERCHLORHYDRIA [None]
